FAERS Safety Report 15132936 (Version 1)
Quarter: 2018Q3

REPORT INFORMATION
  Report Type: Spontaneous
  Country: CH (occurrence: CH)
  Receive Date: 20180712
  Receipt Date: 20180712
  Transmission Date: 20181010
  Serious: Yes (Life-Threatening, Hospitalization, Other)
  Sender: FDA-Public Use
  Company Number: CH-TEVA-2018-CH-922614

PATIENT
  Age: 83 Year
  Sex: Male

DRUGS (26)
  1. ALLOPURINOL MEPHA [Suspect]
     Active Substance: ALLOPURINOL
     Dosage: 200 MILLIGRAM DAILY;
     Route: 048
     Dates: end: 20180606
  2. ALLOPURINOL MEPHA [Suspect]
     Active Substance: ALLOPURINOL
     Dosage: 100 MILLIGRAM DAILY;
     Route: 048
     Dates: start: 20180607
  3. ATORVASTATIN PFIZER [Concomitant]
     Active Substance: ATORVASTATIN
     Dosage: 20 MILLIGRAM DAILY;
     Route: 048
  4. TOREM [Concomitant]
     Active Substance: TORSEMIDE
     Dosage: 5 MILLIGRAM DAILY;
     Dates: end: 20180602
  5. PRAMIPEXOL HELVEPHARM [Suspect]
     Active Substance: PRAMIPEXOLE
     Dosage: .125 MILLIGRAM DAILY;
     Route: 048
     Dates: end: 20180602
  6. LISITRIL [Suspect]
     Active Substance: LISINOPRIL
     Dosage: 20 MILLIGRAM DAILY;
     Route: 048
     Dates: end: 20180602
  7. PLAVIX [Suspect]
     Active Substance: CLOPIDOGREL BISULFATE
     Dosage: 75 MILLIGRAM DAILY;
     Route: 048
     Dates: end: 20180601
  8. TRAMAL [Suspect]
     Active Substance: TRAMADOL
     Dosage: TRAMAL?? TROPFEN (100 MG = 40 GTT) 100 MG/1 ML  ; AS NECESSARY
     Route: 048
     Dates: end: 20180529
  9. METO ZEROK [Suspect]
     Active Substance: METOPROLOL SUCCINATE
     Dosage: 50 MILLIGRAM DAILY;
     Route: 048
     Dates: end: 20180602
  10. FENTANYL SINTETICA [Suspect]
     Active Substance: FENTANYL CITRATE
     Dosage: IN TOTAL
     Route: 042
     Dates: start: 20180601, end: 20180601
  11. VALIUM [Suspect]
     Active Substance: DIAZEPAM
     Dosage: AS NECESSARY
     Route: 048
     Dates: start: 20180601, end: 20180607
  12. SPIRIVA [Concomitant]
     Active Substance: TIOTROPIUM BROMIDE MONOHYDRATE
     Dosage: 18 MICROGRAM DAILY;
  13. PANTOPRAZOL SANDOZ [Suspect]
     Active Substance: PANTOPRAZOLE SODIUM
     Dosage: 40 MILLIGRAM DAILY;
     Route: 048
  14. QUETIAPIN SANDOZ [Suspect]
     Active Substance: QUETIAPINE
     Dosage: IN TOTAL
     Route: 048
     Dates: start: 20180601, end: 20180601
  15. QUETIAPIN SANDOZ [Suspect]
     Active Substance: QUETIAPINE
     Dosage: 25 MILLIGRAM DAILY;
     Route: 048
     Dates: start: 20180607
  16. MORPHIN HCL SINTETICA [Suspect]
     Active Substance: MORPHINE HYDROCHLORIDE
     Dosage: IN TOTAL
     Route: 048
     Dates: start: 20180602, end: 20180602
  17. DAFALGAN [Concomitant]
     Active Substance: ACETAMINOPHEN
     Dosage: 1500 MILLIGRAM DAILY;
     Route: 048
     Dates: end: 20180602
  18. CIPRALEX [Suspect]
     Active Substance: ESCITALOPRAM OXALATE
     Dosage: 10 MILLIGRAM DAILY;
     Route: 048
  19. SPIRICORT [Suspect]
     Active Substance: PREDNISOLONE
     Dosage: SPIRICORT, FILM?COATED TABLETS, 20 MG (PREDNISOLONE); 0.75?0?0.25?0, UNTIL 2 JUNE 2018
     Dates: end: 20180602
  20. HALDOL [Suspect]
     Active Substance: HALOPERIDOL
     Dosage: IN TOTAL
     Route: 048
     Dates: start: 20180601, end: 20180601
  21. QUETIAPIN SANDOZ [Suspect]
     Active Substance: QUETIAPINE
     Dosage: IN TOTAL
     Route: 048
     Dates: start: 20180602, end: 20180602
  22. NOVALGIN (METAMIZOLE SODIUM) [Concomitant]
     Active Substance: METAMIZOLE SODIUM
     Dosage: AS NECESSARY
     Route: 048
     Dates: end: 20180531
  23. PLAVIX [Suspect]
     Active Substance: CLOPIDOGREL BISULFATE
     Dosage: 75 MILLIGRAM DAILY;
     Route: 048
     Dates: start: 20180607
  24. OXYNORM [Suspect]
     Active Substance: OXYCODONE HYDROCHLORIDE
     Dosage: AS NECESSARY
     Route: 048
     Dates: start: 20180529, end: 20180602
  25. MORPHIN HCL SINTETICA [Suspect]
     Active Substance: MORPHINE HYDROCHLORIDE
     Dosage: IN TOTAL
     Route: 048
     Dates: start: 20180530, end: 20180530
  26. ASPIRIN CARDIO [Concomitant]
     Active Substance: ASPIRIN
     Dosage: 100 MILLIGRAM DAILY;
     Route: 048

REACTIONS (6)
  - Delirium [Recovering/Resolving]
  - Disturbance in attention [Recovering/Resolving]
  - Pyrexia [None]
  - Aspiration [None]
  - Adrenocorticotropic hormone deficiency [None]
  - Haemodynamic instability [None]

NARRATIVE: CASE EVENT DATE: 20180601
